FAERS Safety Report 19189691 (Version 4)
Quarter: 2021Q3

REPORT INFORMATION
  Report Type: Spontaneous
  Country: US (occurrence: US)
  Receive Date: 20210428
  Receipt Date: 20210910
  Transmission Date: 20211014
  Serious: Yes (Other)
  Sender: FDA-Public Use
  Company Number: US-PFIZER INC-2021438595

PATIENT
  Age: 85 Year
  Sex: Female
  Weight: 60.77 kg

DRUGS (11)
  1. FASLODEX [Concomitant]
     Active Substance: FULVESTRANT
     Dosage: 250 UNK
  2. IBUPROFEN. [Concomitant]
     Active Substance: IBUPROFEN
     Dosage: 100 MG
  3. IBRANCE [Suspect]
     Active Substance: PALBOCICLIB
     Indication: BASAL CELL CARCINOMA
     Dosage: 100 MG, CYCLIC (21 DAYS ON, 7 DAYS OFF)
     Route: 048
  4. LORATADINE. [Concomitant]
     Active Substance: LORATADINE
     Dosage: UNK
  5. FLONASE ALLERGY RELIEF [Concomitant]
     Active Substance: FLUTICASONE PROPIONATE
     Indication: HYPERSENSITIVITY
     Dosage: UNK
  6. TYLENOL [Concomitant]
     Active Substance: ACETAMINOPHEN
     Dosage: 325 MG
  7. ZOMETA [Concomitant]
     Active Substance: ZOLEDRONIC ACID
     Dosage: UNK
  8. ADVIL [Concomitant]
     Active Substance: IBUPROFEN
     Dosage: UNK
  9. FULVESTRANT. [Concomitant]
     Active Substance: FULVESTRANT
     Dosage: UNK
  10. IBRANCE [Suspect]
     Active Substance: PALBOCICLIB
     Indication: BREAST CANCER
     Dosage: 100 MG, CYCLIC (21 DAYS ON, 7 DAYS OFF)
     Route: 048
     Dates: start: 202102
  11. FLUTICASONE PROPIONATE. [Concomitant]
     Active Substance: FLUTICASONE PROPIONATE
     Dosage: UNK

REACTIONS (11)
  - Feeling hot [Unknown]
  - Dizziness [Unknown]
  - Balance disorder [Unknown]
  - Neuropathy peripheral [Unknown]
  - White blood cell count decreased [Recovering/Resolving]
  - Product dose omission issue [Unknown]
  - Dyspnoea [Not Recovered/Not Resolved]
  - Sinus disorder [Unknown]
  - Hyperhidrosis [Unknown]
  - Blood count abnormal [Unknown]
  - Fatigue [Unknown]
